FAERS Safety Report 20220652 (Version 1)
Quarter: 2021Q4

REPORT INFORMATION
  Report Type: Spontaneous
  Country: ZA (occurrence: ZA)
  Receive Date: 20211223
  Receipt Date: 20211223
  Transmission Date: 20220303
  Serious: Yes (Life-Threatening)
  Sender: FDA-Public Use
  Company Number: ZA-ABBVIE-21K-143-4209752-00

PATIENT
  Age: 70 Year
  Sex: Male

DRUGS (1)
  1. VALPROATE SODIUM [Suspect]
     Active Substance: VALPROATE SODIUM
     Indication: Seizure
     Route: 065

REACTIONS (2)
  - Contraindicated product prescribed [Unknown]
  - Drug ineffective [Unknown]
